FAERS Safety Report 7408999-6 (Version None)
Quarter: 2011Q2

REPORT INFORMATION
  Report Type: 
  Country: None (occurrence: None)
  Receive Date: 20110404
  Receipt Date: 20110317
  Transmission Date: 20111010
  Serious: Yes (Other)
  Sender: FDA-Public Use
  Company Number: 2011MA002611

PATIENT
  Sex: Male

DRUGS (1)
  1. METOCLOPRAMIDE [Suspect]
     Dates: start: 20050801, end: 20061201

REACTIONS (9)
  - MOVEMENT DISORDER [None]
  - DYSTONIA [None]
  - AKATHISIA [None]
  - TARDIVE DYSKINESIA [None]
  - EXTRAPYRAMIDAL DISORDER [None]
  - EMOTIONAL DISORDER [None]
  - TREMOR [None]
  - ECONOMIC PROBLEM [None]
  - INJURY [None]
